FAERS Safety Report 6184460-4 (Version None)
Quarter: 2009Q2

REPORT INFORMATION
  Report Type: 
  Country: None (occurrence: None)
  Receive Date: 20090507
  Receipt Date: 20090507
  Transmission Date: 20091009
  Serious: Yes (Life-Threatening, Hospitalization, Disabling, Other)
  Sender: FDA-Public Use
  Company Number: None

PATIENT
  Sex: Male
  Weight: 88.4514 kg

DRUGS (3)
  1. RISPERDAL [Suspect]
     Indication: AGITATION
     Dosage: 1 TO 5 MILLIGRAMS EVERY 24 HRS (MOSTLY AT BEDTIME)  2001-2005
     Dates: start: 20010301, end: 20050201
  2. RISPERDAL [Suspect]
     Indication: INSOMNIA
     Dosage: 1 TO 5 MILLIGRAMS EVERY 24 HRS (MOSTLY AT BEDTIME)  2001-2005
     Dates: start: 20010301, end: 20050201
  3. RISPERDAL [Suspect]
     Indication: SCHIZOPHRENIA, PARANOID TYPE
     Dosage: 1 TO 5 MILLIGRAMS EVERY 24 HRS (MOSTLY AT BEDTIME)  2001-2005
     Dates: start: 20010301, end: 20050201

REACTIONS (5)
  - AGITATION [None]
  - DRUG INEFFECTIVE [None]
  - HEADACHE [None]
  - INSOMNIA [None]
  - MENTAL DISORDER [None]
